FAERS Safety Report 4481860-5 (Version None)
Quarter: 2004Q3

REPORT INFORMATION
  Report Type: 
  Country: None (occurrence: None)
  Receive Date: 20040921
  Receipt Date: 20031106
  Transmission Date: 20050211
  Serious: Yes (Other)
  Sender: FDA-Public Use
  Company Number: 163-20785-03010210(1)

PATIENT
  Age: 54 Year
  Sex: Male

DRUGS (10)
  1. THALOMID [Suspect]
     Indication: MULTIPLE MYELOMA
     Dosage: 400 MG, DAILY, ORAL
     Route: 048
     Dates: start: 19990322
  2. ACYCLOVIR [Concomitant]
  3. VITAMIN E [Concomitant]
  4. COUMADIN [Concomitant]
  5. PEPCID [Concomitant]
  6. LIPITOR [Concomitant]
  7. INTERFERON (INTERFERON) [Concomitant]
  8. AREDIA [Concomitant]
  9. NEXIUM [Concomitant]
  10. REGLAN [Concomitant]

REACTIONS (2)
  - BLOOD TRIGLYCERIDES INCREASED [None]
  - HYPOTHYROIDISM [None]
